FAERS Safety Report 23864129 (Version 2)
Quarter: 2024Q2

REPORT INFORMATION
  Report Type: Report from Study
  Country: JP (occurrence: None)
  Receive Date: 20240516
  Receipt Date: 20240627
  Transmission Date: 20240716
  Serious: Yes (Death, Hospitalization)
  Sender: FDA-Public Use
  Company Number: 2024A063503

PATIENT
  Age: 72 Year
  Sex: Male
  Weight: 71 kg

DRUGS (5)
  1. IMFINZI [Suspect]
     Active Substance: DURVALUMAB
     Indication: Hepatocellular carcinoma
     Dosage: 1500 MG
     Route: 041
     Dates: start: 20230628, end: 20230628
  2. IMJUDO [Suspect]
     Active Substance: TREMELIMUMAB\TREMELIMUMAB-ACTL
     Indication: Hepatocellular carcinoma
     Dosage: 300 MG
     Route: 041
     Dates: start: 20230628, end: 20230628
  3. PREDONINE [Suspect]
     Active Substance: PREDNISOLONE
     Indication: Hepatocellular carcinoma
     Route: 048
     Dates: start: 20230628
  4. PREDONINE [Suspect]
     Active Substance: PREDNISOLONE
     Indication: Hepatocellular carcinoma
     Route: 048
  5. PREDONINE [Suspect]
     Active Substance: PREDNISOLONE
     Indication: Hepatocellular carcinoma
     Route: 048

REACTIONS (2)
  - Rash [Recovering/Resolving]
  - Pneumonia [Fatal]

NARRATIVE: CASE EVENT DATE: 20230628
